FAERS Safety Report 23838064 (Version 2)
Quarter: 2024Q2

REPORT INFORMATION
  Report Type: Spontaneous
  Country: PT (occurrence: PT)
  Receive Date: 20240509
  Receipt Date: 20240515
  Transmission Date: 20240715
  Serious: Yes (Other)
  Sender: FDA-Public Use
  Company Number: PT-AMERICAN REGENT INC-2024001733

PATIENT
  Sex: Female

DRUGS (1)
  1. FERINJECT [Suspect]
     Active Substance: FERRIC CARBOXYMALTOSE
     Indication: Anaemia
     Dosage: 1 GRAM, SINGLE DOSE (1 GM,1 IN 1 TOTAL)
     Route: 042
     Dates: start: 20240411, end: 20240411

REACTIONS (1)
  - Papule [Recovered/Resolved]

NARRATIVE: CASE EVENT DATE: 20240411
